FAERS Safety Report 21283560 (Version 2)
Quarter: 2022Q3

REPORT INFORMATION
  Report Type: Report from Study
  Country: JP (occurrence: JP)
  Receive Date: 20220901
  Receipt Date: 20220909
  Transmission Date: 20221027
  Serious: Yes (Death, Hospitalization)
  Sender: FDA-Public Use
  Company Number: JP-ALNYLAM PHARMACEUTICALS, INC.-ALN-2022-003102

PATIENT

DRUGS (2)
  1. ONPATTRO [Suspect]
     Active Substance: PATISIRAN SODIUM
     Indication: Hereditary neuropathic amyloidosis
     Dosage: 6.45 MILLILITER
     Route: 041
     Dates: start: 202001, end: 20210909
  2. LASIX [Concomitant]
     Active Substance: FUROSEMIDE
     Indication: Product used for unknown indication
     Route: 048

REACTIONS (5)
  - Dyspnoea [Fatal]
  - Pneumonia aspiration [Fatal]
  - Decreased activity [Unknown]
  - Cardiac hypertrophy [Unknown]
  - Decreased appetite [Unknown]

NARRATIVE: CASE EVENT DATE: 20210101
